FAERS Safety Report 5522887-1 (Version None)
Quarter: 2007Q4

REPORT INFORMATION
  Report Type: 
  Country: None (occurrence: None)
  Receive Date: 20071116
  Receipt Date: 20071106
  Transmission Date: 20080405
  Serious: Yes (Other)
  Sender: FDA-Public Use
  Company Number: 239596K07USA

PATIENT
  Age: 49 Year
  Sex: Female
  Weight: 79.3795 kg

DRUGS (8)
  1. REBIF [Suspect]
     Indication: MULTIPLE SCLEROSIS
     Dosage: 44 MCG, 3 IN 1 WEEKS, SUBCUTANEOUS
     Route: 058
     Dates: start: 20050804
  2. NOVANTRONE [Suspect]
     Indication: MULTIPLE SCLEROSIS
     Dosage: 24 MG, 1 IN 3 MONTHS, INTRAVENOUS (NOT OTHERWISE SPECIFIED)
     Route: 042
     Dates: start: 20050908, end: 20061101
  3. METFORMIN                               (METFORMIN /00082701/) [Concomitant]
  4. LOPERAMIDE                    (LOPERAMIDE /00384301/) [Concomitant]
  5. ZOCOR [Concomitant]
  6. ACTOS [Concomitant]
  7. LOTREL [Concomitant]
  8. TYLENOL          (COTYLENOL) [Concomitant]

REACTIONS (4)
  - BLOOD GLUCOSE DECREASED [None]
  - CONVULSION [None]
  - DIABETIC RETINOPATHY [None]
  - WHITE BLOOD CELL COUNT DECREASED [None]
